FAERS Safety Report 5269894-4 (Version None)
Quarter: 2007Q1

REPORT INFORMATION
  Report Type: 
  Country: None (occurrence: None)
  Receive Date: 20070320
  Receipt Date: 20070309
  Transmission Date: 20070707
  Serious: Yes (Hospitalization, Other)
  Sender: FDA-Public Use
  Company Number: GB-GLAXOSMITHKLINE-B0462413B

PATIENT
  Sex: Male

DRUGS (2)
  1. TRIZIVIR [Suspect]
     Indication: HIV INFECTION
     Dates: end: 20061214
  2. KALETRA [Suspect]
     Indication: HIV INFECTION
     Dosage: 2TAB TWICE PER DAY
     Dates: start: 20060804

REACTIONS (4)
  - DRUG EXPOSURE DURING PREGNANCY [None]
  - FOETAL GROWTH RETARDATION [None]
  - PREMATURE BABY [None]
  - SMALL FOR DATES BABY [None]
